FAERS Safety Report 25908706 (Version 3)
Quarter: 2025Q4

REPORT INFORMATION
  Report Type: Report from Study
  Country: EU (occurrence: EU)
  Receive Date: 20251011
  Receipt Date: 20251114
  Transmission Date: 20260118
  Serious: Yes (Other)
  Sender: ABBVIE
  Company Number: EU-ABBVIE-6495642

PATIENT
  Age: 77 Year
  Sex: Male

DRUGS (11)
  1. FOSCARBIDOPA\FOSLEVODOPA [Suspect]
     Active Substance: FOSCARBIDOPA\FOSLEVODOPA
     Indication: Parkinson^s disease
     Dosage: 240 MG + 12 MG?FREQUENCY TEXT: LO:0.9;BA:0.41;HI:0.44;LO:0.24;EXT:0.22
     Route: 058
     Dates: start: 20251007
  2. FOSCARBIDOPA\FOSLEVODOPA [Suspect]
     Active Substance: FOSCARBIDOPA\FOSLEVODOPA
     Dosage: 240 MG + 12 MG?FREQUENCY TEXT: LO:0.9;BA:0.39;HI:0.44;LO:0.24;EXT:0.2
     Route: 058
     Dates: start: 2025, end: 20251007
  3. FOSCARBIDOPA\FOSLEVODOPA [Suspect]
     Active Substance: FOSCARBIDOPA\FOSLEVODOPA
     Dosage: 240 MG + 12 MG?FREQUENCY TEXT: LO:0.9;BA:0.29;HI:0.34;LO:0.2;EXT:0.15
     Route: 058
     Dates: start: 20241113
  4. CYANOCOBALAMIN [Concomitant]
     Active Substance: CYANOCOBALAMIN
     Indication: Product used for unknown indication
     Dosage: START DATE TEXT: BEFORE DUODOPA SUBCUTANEOUS
  5. BENSERAZIDE HYDROCHLORIDE\LEVODOPA [Concomitant]
     Active Substance: BENSERAZIDE HYDROCHLORIDE\LEVODOPA
     Indication: Product used for unknown indication
     Dosage: 1 TABLET?FREQUENCY TEXT: AT 11PM?START DATE TEXT: BEFORE DUODOPA SUBCUTANEOUS?STOP DATE TEXT: AFT...
  6. SAFINAMIDE [Concomitant]
     Active Substance: SAFINAMIDE
     Indication: Product used for unknown indication
     Dosage: FREQUENCY TEXT: AT BREAKFAST?START DATE TEXT: BEFORE DUODOPA SUBCUTANEOUS?STOP DATE TEXT: UNKNOWN
  7. OPICAPONE [Concomitant]
     Active Substance: OPICAPONE
     Indication: Product used for unknown indication
     Dosage: FREQUENCY TEXT: 1 TAB IN ALTERNATE DAYS (9H30PM)?START DATE TEXT: BEFORE DUODOPA SUBCUTANEOUS?STO...
  8. BENSERAZIDE HYDROCHLORIDE\LEVODOPA [Concomitant]
     Active Substance: BENSERAZIDE HYDROCHLORIDE\LEVODOPA
     Indication: Product used for unknown indication
     Dosage: 0.25 TABLET?START DATE TEXT: BEFORE DUODOPA SUBCUTANEOUS?STOP DATE TEXT: AFTER DUODOPA
  9. HERBALS [Concomitant]
     Active Substance: HERBALS
     Indication: Product used for unknown indication
  10. FOLIC ACID [Concomitant]
     Active Substance: FOLIC ACID
     Indication: Product used for unknown indication
     Route: 048
     Dates: start: 202510
  11. CYANOCOBALAMIN [Concomitant]
     Active Substance: CYANOCOBALAMIN
     Indication: Product used for unknown indication
     Route: 048
     Dates: start: 202510

REACTIONS (4)
  - Anaemia [Not Recovered/Not Resolved]
  - Skin disorder [Not Recovered/Not Resolved]
  - Mucosal disorder [Not Recovered/Not Resolved]
  - Fatigue [Recovering/Resolving]

NARRATIVE: CASE EVENT DATE: 20250101
